FAERS Safety Report 7276351-2 (Version None)
Quarter: 2011Q1

REPORT INFORMATION
  Report Type: 
  Country: None (occurrence: None)
  Receive Date: 20110204
  Receipt Date: 20110128
  Transmission Date: 20110831
  Serious: Yes (Other)
  Sender: FDA-Public Use
  Company Number: NL-US-EMD SERONO, INC.-7039017

PATIENT
  Age: 48 Year
  Sex: Female

DRUGS (1)
  1. NOVANTRONE [Suspect]
     Indication: RELAPSING-REMITTING MULTIPLE SCLEROSIS

REACTIONS (2)
  - CARDIAC FAILURE [None]
  - CONGESTIVE CARDIOMYOPATHY [None]
